FAERS Safety Report 6023019-6 (Version None)
Quarter: 2008Q4

REPORT INFORMATION
  Report Type: 
  Country: None (occurrence: None)
  Receive Date: 20081223
  Receipt Date: 20081208
  Transmission Date: 20090506
  Serious: Yes (Life-Threatening, Other)
  Sender: FDA-Public Use
  Company Number: JHP200800350

PATIENT
  Age: 49 Year
  Sex: Male

DRUGS (2)
  1. DANTRIUM [Suspect]
     Indication: PAIN IN EXTREMITY
     Dosage: 1 DF, QD, ORAL
     Route: 048
     Dates: start: 20081128, end: 20081128
  2. LIORESAL [Concomitant]

REACTIONS (1)
  - URINARY RETENTION [None]
